FAERS Safety Report 7177099-5 (Version None)
Quarter: 2010Q4

REPORT INFORMATION
  Report Type: 
  Country: None (occurrence: None)
  Receive Date: 20101220
  Receipt Date: 20101207
  Transmission Date: 20110411
  Serious: Yes (Hospitalization)
  Sender: FDA-Public Use
  Company Number: PHHY2010AU83564

PATIENT

DRUGS (1)
  1. FEMARA [Suspect]

REACTIONS (2)
  - GOUTY ARTHRITIS [None]
  - INFECTION [None]
